FAERS Safety Report 11304160 (Version 1)
Quarter: 2015Q3

REPORT INFORMATION
  Report Type: Spontaneous
  Country: US (occurrence: US)
  Receive Date: 20150723
  Receipt Date: 20150723
  Transmission Date: 20151125
  Serious: No
  Sender: FDA-Public Use
  Company Number: US-JNJFOC-20150422346

PATIENT
  Age: 78 Year
  Sex: Male

DRUGS (3)
  1. ZYRTEC TABLETS IR 10MG [Suspect]
     Active Substance: CETIRIZINE HYDROCHLORIDE
     Indication: SINUS CONGESTION
     Route: 048
     Dates: start: 20150403, end: 20150405
  2. ZYRTEC TABLETS IR 10MG [Suspect]
     Active Substance: CETIRIZINE HYDROCHLORIDE
     Route: 048
  3. FLOMAX [Concomitant]
     Active Substance: TAMSULOSIN HYDROCHLORIDE
     Indication: PROSTATIC DISORDER
     Route: 065

REACTIONS (1)
  - Expired product administered [Unknown]
